FAERS Safety Report 14349247 (Version 2)
Quarter: 2018Q1

REPORT INFORMATION
  Report Type: Report from Study
  Country: JP (occurrence: JP)
  Receive Date: 20180104
  Receipt Date: 20180209
  Transmission Date: 20180509
  Serious: Yes (Hospitalization)
  Sender: FDA-Public Use
  Company Number: JP-ACTELION-A-CH2017-164842

PATIENT
  Age: 23 Year
  Sex: Male

DRUGS (24)
  1. EPOPROSTENOL ACT [Suspect]
     Active Substance: EPOPROSTENOL
     Indication: PULMONARY ARTERIAL HYPERTENSION
     Dosage: 121.8 NG/KG, PER MIN
     Route: 042
     Dates: start: 20150205
  2. EPOPROSTENOL ACT [Suspect]
     Active Substance: EPOPROSTENOL
     Dosage: 135.5 NG/KG, PER MIN
     Route: 042
     Dates: start: 20150618
  3. GASMOTIN [Concomitant]
     Active Substance: MOSAPRIDE CITRATE
  4. OXYGEN. [Concomitant]
     Active Substance: OXYGEN
  5. EPOPROSTENOL ACT [Suspect]
     Active Substance: EPOPROSTENOL
     Dosage: 143.0 NG/KG, PER MIN
     Route: 042
     Dates: start: 20151015
  6. OPSUMIT [Concomitant]
     Active Substance: MACITENTAN
  7. LAC-B [Concomitant]
     Active Substance: BIFIDOBACTERIUM SPP.
  8. CODEINE PHOSPHATE [Concomitant]
     Active Substance: CODEINE PHOSPHATE
  9. FEBURIC [Concomitant]
     Active Substance: FEBUXOSTAT
  10. EPOPROSTENOL ACT [Suspect]
     Active Substance: EPOPROSTENOL
     Dosage: 129.2 NG/KG, PER MIN
     Route: 042
     Dates: start: 20150423
  11. TRACLEER [Concomitant]
     Active Substance: BOSENTAN
  12. TAKEPRON [Concomitant]
     Active Substance: LANSOPRAZOLE
  13. PRIMPERAN [Concomitant]
     Active Substance: METOCLOPRAMIDE HYDROCHLORIDE
  14. EPOPROSTENOL ACT [Suspect]
     Active Substance: EPOPROSTENOL
     Dosage: 139.3 NG/KG, PER MIN
     Route: 042
     Dates: start: 20150820
  15. KLARICID [Concomitant]
     Active Substance: CLARITHROMYCIN
  16. TRACLEER [Concomitant]
     Active Substance: BOSENTAN
  17. LANSOPRAZOLE. [Concomitant]
     Active Substance: LANSOPRAZOLE
  18. BIOFERMIN [Concomitant]
     Active Substance: BACILLUS SUBTILIS\LACTOBACILLUS ACIDOPHILUS\STREPTOCOCCUS FAECAIS
  19. ALDACTONE A [Concomitant]
     Active Substance: SPIRONOLACTONE
  20. EPOPROSTENOL ACT [Suspect]
     Active Substance: EPOPROSTENOL
     Dosage: 125.5 NG/KG, PER MIN
     Route: 042
     Dates: start: 20150312
  21. LUPRAC [Concomitant]
     Active Substance: TORSEMIDE
  22. GLUCONSAN K [Concomitant]
     Active Substance: POTASSIUM GLUCONATE
  23. ADEMPAS [Concomitant]
     Active Substance: RIOCIGUAT
  24. FLUITRAN [Concomitant]
     Active Substance: TRICHLORMETHIAZIDE

REACTIONS (2)
  - Tachyarrhythmia [Recovered/Resolved]
  - Autoimmune thyroiditis [Recovering/Resolving]

NARRATIVE: CASE EVENT DATE: 20160714
